FAERS Safety Report 20607061 (Version 1)
Quarter: 2022Q1

REPORT INFORMATION
  Report Type: Spontaneous
  Country: US (occurrence: US)
  Receive Date: 20220317
  Receipt Date: 20220317
  Transmission Date: 20220423
  Serious: Yes (Hospitalization)
  Sender: FDA-Public Use
  Company Number: US-009507513-2203USA004637

PATIENT
  Sex: Male

DRUGS (13)
  1. INTRON A [Suspect]
     Active Substance: INTERFERON ALFA-2B
     Indication: Nephrogenic anaemia
     Dosage: UNK,ONCE WEEKLY FOR 6 WEEKS; STRENGTH: 50 MU
     Route: 043
     Dates: start: 20220211
  2. TICE BCG [Suspect]
     Active Substance: BACILLUS CALMETTE-GUERIN SUBSTRAIN TICE LIVE ANTIGEN
     Indication: Nephrogenic anaemia
     Dosage: UNK, ONCE WEEKLY FOR 6 WEEKS
     Route: 043
     Dates: start: 20220211
  3. ALLOPURINOL [Concomitant]
     Active Substance: ALLOPURINOL
  4. AMLODIPINE BESYLATE [Concomitant]
     Active Substance: AMLODIPINE BESYLATE
  5. FUROSEMIDE [Concomitant]
     Active Substance: FUROSEMIDE
  6. LACTULOSE [Concomitant]
     Active Substance: LACTULOSE
  7. LORATADINE [Concomitant]
     Active Substance: LORATADINE
  8. LOVASTATIN [Concomitant]
     Active Substance: LOVASTATIN
  9. HYALURONIC ACID [Concomitant]
     Active Substance: HYALURONIC ACID
  10. TAMSULOSIN HYDROCHLORIDE [Concomitant]
     Active Substance: TAMSULOSIN HYDROCHLORIDE
  11. TRAMADOL HCL [Concomitant]
     Active Substance: TRAMADOL HYDROCHLORIDE
  12. TRIAMCINOLONE ACETONIDE [Concomitant]
     Active Substance: TRIAMCINOLONE ACETONIDE
  13. CARVEDILOL [Concomitant]
     Active Substance: CARVEDILOL

REACTIONS (3)
  - Adverse event [Unknown]
  - Incorrect route of product administration [Unknown]
  - Product use in unapproved indication [Unknown]

NARRATIVE: CASE EVENT DATE: 20220101
